FAERS Safety Report 18694683 (Version 2)
Quarter: 2021Q2

REPORT INFORMATION
  Report Type: Report from Study
  Country: US (occurrence: US)
  Receive Date: 20210104
  Receipt Date: 20210408
  Transmission Date: 20210717
  Serious: Yes (Other)
  Sender: FDA-Public Use
  Company Number: US-MYLANLABS-2020M1106154

PATIENT
  Age: 56 Year
  Sex: Male
  Weight: 68.9 kg

DRUGS (24)
  1. TOBI [Suspect]
     Active Substance: TOBRAMYCIN
     Indication: PSEUDOMONAS INFECTION
  2. CAYSTON [Concomitant]
     Active Substance: AZTREONAM
     Indication: PSEUDOMONAS INFECTION
     Dosage: 75 MILLIGRAM, TID (28 DAYS ON, 28 DAYS OFF (CURRENTLY OFF) )
     Dates: start: 2010, end: 20180516
  3. DOXYCYCLINE. [Concomitant]
     Active Substance: DOXYCYCLINE
     Indication: CYSTIC FIBROSIS
     Dosage: 100 MILLIGRAM, BID
     Route: 048
     Dates: start: 20160608, end: 201806
  4. CLARITIN [Concomitant]
     Active Substance: LORATADINE
     Dosage: 10 MG BY MOUTH DAILY
     Route: 048
  5. CIPROFLOXACIN. [Concomitant]
     Active Substance: CIPROFLOXACIN
  6. TOBI [Suspect]
     Active Substance: TOBRAMYCIN
     Indication: CYSTIC FIBROSIS
     Dosage: 300 MILLIGRAM, BID
     Dates: start: 2011, end: 20180418
  7. PULMOZYME [Concomitant]
     Active Substance: DORNASE ALFA
     Indication: CYSTIC FIBROSIS
     Dosage: 2.5 MILLIGRAM, BID
     Dates: end: 201806
  8. ADEK [Concomitant]
     Dosage: 1 TAB BY MOUTH DAILY
     Route: 048
  9. METOPROLOL. [Concomitant]
     Active Substance: METOPROLOL
     Dosage: 50 MILLIGRAM, QD
  10. CREON [Concomitant]
     Active Substance: PANCRELIPASE AMYLASE\PANCRELIPASE LIPASE\PANCRELIPASE PROTEASE
     Indication: PANCREATIC FAILURE
     Dosage: 7 CAPSULES WITH MEALS, 4 WITH LARGE SNACKS (35?40 PER DAY)
     Route: 048
     Dates: start: 2014, end: 201806
  11. HYPERTONIC SALINE SOLUTION [Concomitant]
     Active Substance: SODIUM CHLORIDE
     Dosage: UNK, BID
  12. ALBUTEROL                          /00139501/ [Concomitant]
     Active Substance: ALBUTEROL
     Dosage: PRESCRIBED TODAY (HAS PREVIOUSLY HAD TROUBLE WITH PALPITATIONS WITH
  13. VITAMIN D                          /00107901/ [Concomitant]
     Active Substance: ERGOCALCIFEROL
     Dosage: 500 MG 400 UNITS BY MOUTH TWICE DAILY
     Route: 048
  14. SINGULAIR [Concomitant]
     Active Substance: MONTELUKAST SODIUM
     Indication: ASTHMA
     Dosage: 10 MG BY MOUTH DAILY
     Route: 048
     Dates: start: 20160713, end: 201806
  15. ERYTHROMYCIN. [Concomitant]
     Active Substance: ERYTHROMYCIN
     Dosage: UNK
  16. VITAMIN C [Concomitant]
     Active Substance: ASCORBIC ACID
     Dosage: 1 ,OOO UNITS BY MOUTH DAILY
     Route: 048
  17. VITAMIN K [Concomitant]
     Active Substance: PHYTONADIONE
     Dosage: 5 MG BY MOUTH 3 TIMES PER WEEK
  18. OXYCODONE [Concomitant]
     Active Substance: OXYCODONE
     Dosage: 5?10 MG BY MOUTH Q4HR PRN
     Route: 048
  19. OXYBUTYNIN. [Concomitant]
     Active Substance: OXYBUTYNIN CHLORIDE
     Dosage: 5 MG DAILY
  20. HUMALOG [Concomitant]
     Active Substance: INSULIN LISPRO
     Indication: DIABETES MELLITUS
     Dosage: VIA INSULIN PUMP
     Dates: start: 2014, end: 201806
  21. OMEPRAZOLE. [Concomitant]
     Active Substance: OMEPRAZOLE
     Indication: GASTROOESOPHAGEAL REFLUX DISEASE
     Dosage: 40 MG BY MOUTH TWICE DAILY
     Route: 048
     Dates: start: 2001, end: 201806
  22. FINASTERIDE. [Concomitant]
     Active Substance: FINASTERIDE
     Dosage: 5 MG DAILY
  23. ADVAIR HFA [Concomitant]
     Active Substance: FLUTICASONE PROPIONATE\SALMETEROL XINAFOATE
     Dosage: 2 PUFFS TWICE DAILY
  24. CYCLOBENZAPRINE. [Concomitant]
     Active Substance: CYCLOBENZAPRINE
     Dosage: 10 MG BY MOUTH DAILY AT BEDTIME
     Route: 048

REACTIONS (1)
  - Prostate cancer [Recovered/Resolved]

NARRATIVE: CASE EVENT DATE: 201806
